FAERS Safety Report 7910459-0 (Version None)
Quarter: 2011Q4

REPORT INFORMATION
  Report Type: 
  Country: None (occurrence: None)
  Receive Date: 20111111
  Receipt Date: 20110520
  Transmission Date: 20120403
  Serious: No
  Sender: FDA-Public Use
  Company Number: US-BAYER-2011-075621

PATIENT
  Sex: Female
  Weight: 66.667 kg

DRUGS (1)
  1. DOMEBORO [Suspect]
     Dosage: UNK UNK, BID
     Route: 061
     Dates: start: 20110401, end: 20110501

REACTIONS (5)
  - SKIN IRRITATION [None]
  - UNEVALUABLE EVENT [None]
  - DRY SKIN [None]
  - PAIN IN EXTREMITY [None]
  - OEDEMA PERIPHERAL [None]
